FAERS Safety Report 4519807-5 (Version None)
Quarter: 2004Q4

REPORT INFORMATION
  Report Type: 
  Country: None (occurrence: None)
  Receive Date: 20041202
  Receipt Date: 20041202
  Transmission Date: 20050328
  Serious: Yes (Other)
  Sender: FDA-Public Use
  Company Number: None

PATIENT
  Age: 40 Year
  Sex: Female
  Weight: 81.6475 kg

DRUGS (1)
  1. BEXTRA [Suspect]
     Indication: ARTHRITIS
     Dosage: 1  A DAY
     Dates: start: 20040801, end: 20041105

REACTIONS (4)
  - CHEMICAL BURN OF SKIN [None]
  - DERMATITIS EXFOLIATIVE [None]
  - SKIN DESQUAMATION [None]
  - SKIN IRRITATION [None]
